FAERS Safety Report 8247952-X (Version None)
Quarter: 2012Q1

REPORT INFORMATION
  Report Type: 
  Country: None (occurrence: None)
  Receive Date: 20120330
  Receipt Date: 20120322
  Transmission Date: 20120608
  Serious: Yes (Death, Hospitalization)
  Sender: FDA-Public Use
  Company Number: US-ACTELION-A-US2012-63078

PATIENT

DRUGS (3)
  1. CALCIUM CHANNEL BLOCKERS [Concomitant]
  2. TRACLEER [Suspect]
     Indication: PULMONARY ARTERIAL HYPERTENSION
     Dosage: 125
     Route: 048
     Dates: start: 20110607, end: 20120127
  3. REVATIO [Concomitant]

REACTIONS (8)
  - DEATH [None]
  - MYOCARDIAL INFARCTION [None]
  - VENTRICULAR TACHYCARDIA [None]
  - CORONARY ANGIOPLASTY [None]
  - RASH [None]
  - CATHETERISATION CARDIAC [None]
  - RESPIRATORY DISTRESS [None]
  - CHEST DISCOMFORT [None]
